FAERS Safety Report 5219545-X (Version None)
Quarter: 2007Q1

REPORT INFORMATION
  Report Type: 
  Country: None (occurrence: None)
  Receive Date: 20070125
  Receipt Date: 20070115
  Transmission Date: 20070707
  Serious: Yes (Death)
  Sender: FDA-Public Use
  Company Number: CN-PFIZER INC-2007004204

PATIENT
  Age: 66 Year
  Sex: Male

DRUGS (3)
  1. SOLU-MEDROL [Suspect]
     Dates: start: 20051217, end: 20051218
  2. MANNITOL [Concomitant]
  3. DEXAMETHASONE [Concomitant]

REACTIONS (1)
  - CARDIAC FAILURE [None]
